FAERS Safety Report 7563638-9 (Version None)
Quarter: 2011Q2

REPORT INFORMATION
  Report Type: 
  Country: None (occurrence: None)
  Receive Date: 20110621
  Receipt Date: 20110621
  Transmission Date: 20111010
  Serious: Yes (Hospitalization, Other)
  Sender: FDA-Public Use
  Company Number: None

PATIENT
  Sex: Female
  Weight: 58.9676 kg

DRUGS (1)
  1. BOTOX [Suspect]
     Indication: MYOFASCIAL PAIN SYNDROME
     Dosage: 100 UNITS ONCE INJECTION
     Dates: start: 20101012

REACTIONS (20)
  - VERTIGO [None]
  - HYPERAESTHESIA [None]
  - PAIN OF SKIN [None]
  - MYALGIA [None]
  - ASTHENIA [None]
  - COGNITIVE DISORDER [None]
  - HEAD DISCOMFORT [None]
  - VISUAL IMPAIRMENT [None]
  - CEREBROVASCULAR DISORDER [None]
  - ANXIETY [None]
  - EAR DISCOMFORT [None]
  - MOVEMENT DISORDER [None]
  - PHOTOPHOBIA [None]
  - VISION BLURRED [None]
  - TREMOR [None]
  - MUSCULAR WEAKNESS [None]
  - MALAISE [None]
  - INFLUENZA LIKE ILLNESS [None]
  - NEUROPATHY PERIPHERAL [None]
  - FEELING HOT [None]
